FAERS Safety Report 8771777 (Version 1)
Quarter: 2012Q4

REPORT INFORMATION
  Report Type: Report from Study
  Country: US (occurrence: US)
  Receive Date: 20120906
  Receipt Date: 20120906
  Transmission Date: 20130627
  Serious: Yes (Hospitalization)
  Sender: FDA-Public Use
  Company Number: US-PURDUE-USA-2012-0092361

PATIENT
  Sex: Male

DRUGS (2)
  1. OXYCONTIN (NDA 22-272) [Suspect]
     Indication: PRODUCT USED FOR UNKNOWN INDICATION
     Dosage: 80 mg, bid
     Route: 048
  2. OXYCONTIN (NDA 22-272) [Suspect]
     Dosage: 40 mg, bid
     Route: 048

REACTIONS (4)
  - Inguinal hernia [Recovered/Resolved]
  - Staphylococcal infection [Recovered/Resolved]
  - Thrombosis [Unknown]
  - Pyrexia [Recovered/Resolved]
